FAERS Safety Report 16792893 (Version 1)
Quarter: 2019Q3

REPORT INFORMATION
  Report Type: Spontaneous
  Country: FR (occurrence: FR)
  Receive Date: 20190910
  Receipt Date: 20190910
  Transmission Date: 20191005
  Serious: Yes (Life-Threatening)
  Sender: FDA-Public Use
  Company Number: FR-ASTRAZENECA-2019SF27191

PATIENT
  Age: 71 Year
  Sex: Male
  Weight: 62 kg

DRUGS (10)
  1. LYNPARZA [Suspect]
     Active Substance: OLAPARIB
     Indication: PROSTATE CANCER METASTATIC
     Route: 048
     Dates: start: 20190620, end: 20190712
  2. MOPRAL [Concomitant]
     Active Substance: OMEPRAZOLE
     Route: 048
  3. TAHOR [Concomitant]
     Active Substance: ATORVASTATIN CALCIUM
     Route: 048
  4. COVERAM [Concomitant]
     Active Substance: AMLODIPINE\PERINDOPRIL
     Route: 048
  5. OXYNORM [Concomitant]
     Active Substance: OXYCODONE HYDROCHLORIDE
     Route: 048
  6. XGEVA [Concomitant]
     Active Substance: DENOSUMAB
     Route: 051
  7. KEYTRUDA [Suspect]
     Active Substance: PEMBROLIZUMAB
     Indication: PROSTATE CANCER METASTATIC
     Route: 042
     Dates: start: 20190620
  8. DUROGESIC [Concomitant]
     Active Substance: FENTANYL
  9. KARDEGIC [Concomitant]
     Active Substance: ASPIRIN DL-LYSINE
     Route: 048
  10. ZOLADEX [Concomitant]
     Active Substance: GOSERELIN ACETATE
     Route: 058

REACTIONS (2)
  - Myocarditis [Recovering/Resolving]
  - Myositis [Recovering/Resolving]

NARRATIVE: CASE EVENT DATE: 20190719
